FAERS Safety Report 8296041-7 (Version None)
Quarter: 2012Q2

REPORT INFORMATION
  Report Type: 
  Country: None (occurrence: None)
  Receive Date: 20120418
  Receipt Date: 20101129
  Transmission Date: 20120825
  Serious: Yes (Hospitalization)
  Sender: FDA-Public Use
  Company Number: US-GLAXOSMITHKLINE-A0898438A

PATIENT
  Age: 57 Year
  Sex: Male

DRUGS (1)
  1. AVANDIA [Suspect]
     Indication: TYPE 2 DIABETES MELLITUS
     Dosage: 4MG PER DAY
     Route: 048
     Dates: start: 20070820, end: 20070821

REACTIONS (8)
  - HYPERTENSION [None]
  - DYSPNOEA [None]
  - PAIN [None]
  - CATHETERISATION CARDIAC [None]
  - CORONARY ARTERY DISEASE [None]
  - CHEST PAIN [None]
  - DYSLIPIDAEMIA [None]
  - CHEST DISCOMFORT [None]
